FAERS Safety Report 7440946-3 (Version None)
Quarter: 2011Q2

REPORT INFORMATION
  Report Type: 
  Country: None (occurrence: None)
  Receive Date: 20110427
  Receipt Date: 20110418
  Transmission Date: 20111010
  Serious: Yes (Hospitalization, Other)
  Sender: FDA-Public Use
  Company Number: PHHY2011US34741

PATIENT
  Age: 38 Year
  Sex: Female
  Weight: 76 kg

DRUGS (5)
  1. NEORAL [Suspect]
     Indication: PROPHYLAXIS AGAINST TRANSPLANT REJECTION
     Dosage: 200 MG, QD
     Route: 048
     Dates: start: 20060801, end: 20100830
  2. ASPIRIN [Concomitant]
     Indication: HYPERTENSION
     Dosage: 81 MG, QD
     Route: 048
  3. CELLCEPT [Concomitant]
     Dosage: 2000 MG, QD
     Route: 048
     Dates: start: 19991014
  4. ASPIRIN [Concomitant]
     Indication: CARDIOVASCULAR EVENT PROPHYLAXIS
  5. WELLBUTRIN XL [Concomitant]
     Indication: DEPRESSION
     Dosage: 300 MG, QD
     Route: 048
     Dates: start: 20050301

REACTIONS (3)
  - SKIN CANCER [None]
  - HYPERLIPIDAEMIA [None]
  - ADNEXA UTERI MASS [None]
